FAERS Safety Report 6978229-8 (Version None)
Quarter: 2010Q3

REPORT INFORMATION
  Report Type: 
  Country: None (occurrence: None)
  Receive Date: 20100913
  Receipt Date: 20100901
  Transmission Date: 20110219
  Serious: Yes (Hospitalization, Other)
  Sender: FDA-Public Use
  Company Number: ES-ELI_LILLY_AND_COMPANY-ES201009000455

PATIENT
  Sex: Female
  Weight: 75 kg

DRUGS (8)
  1. FORTEO [Suspect]
     Indication: OSTEOPOROSIS
     Dosage: 20 UG, DAILY (1/D)
     Route: 058
     Dates: start: 20090727, end: 20100613
  2. SINEMET [Concomitant]
     Indication: PARKINSONISM
     Dosage: UNK, 2 A DAY
     Dates: start: 20090101
  3. COAPROVEL [Concomitant]
     Indication: HYPERTENSION
     Dosage: 300 MG, DAILY (1/D)
     Route: 048
  4. TORSEMIDE [Concomitant]
     Indication: DIURETIC THERAPY
     Dosage: 5 MG, 2/D
     Route: 048
  5. ZYLORIC [Concomitant]
     Dosage: 300 MG, DAILY (1/D)
     Route: 048
  6. ASPIRIN [Concomitant]
     Indication: ANTICOAGULANT THERAPY
     Dosage: 100 MG, DAILY (1/D)
     Route: 048
  7. AZILECT [Concomitant]
     Indication: PARKINSONISM
     Dosage: 1 MG, DAILY (1/D)
     Route: 048
  8. LORAZEPAM [Concomitant]
     Indication: INSOMNIA
     Dosage: 1 MG, 2/D
     Route: 048

REACTIONS (2)
  - NEOPLASM [None]
  - NEPHRECTOMY [None]
